FAERS Safety Report 25601557 (Version 4)
Quarter: 2025Q3

REPORT INFORMATION
  Report Type: Spontaneous
  Country: US (occurrence: US)
  Receive Date: 20250724
  Receipt Date: 20250925
  Transmission Date: 20251020
  Serious: No
  Sender: UNITED THERAPEUTICS
  Company Number: US-UNITED THERAPEUTICS-UNT-2025-018760

PATIENT
  Sex: Male

DRUGS (14)
  1. TYVASO [Suspect]
     Active Substance: TREPROSTINIL
     Indication: Pulmonary hypertension
     Dosage: 18 ?G, QID
     Dates: start: 20250529, end: 2025
  2. TYVASO [Suspect]
     Active Substance: TREPROSTINIL
     Indication: Idiopathic pulmonary fibrosis
     Dosage: 30 ?G, QID
     Dates: start: 2025, end: 2025
  3. TYVASO [Suspect]
     Active Substance: TREPROSTINIL
     Dosage: 48 ?G, QID
     Dates: start: 2025, end: 2025
  4. TYVASO [Suspect]
     Active Substance: TREPROSTINIL
     Dosage: 30 ?G, QID
     Dates: start: 2025, end: 2025
  5. TYVASO [Suspect]
     Active Substance: TREPROSTINIL
  6. TYVASO [Suspect]
     Active Substance: TREPROSTINIL
     Dates: start: 20250717, end: 20250717
  7. TYVASO [Suspect]
     Active Substance: TREPROSTINIL
     Dosage: 60 ?G, QID
     Dates: start: 202507, end: 2025
  8. TYVASO [Suspect]
     Active Substance: TREPROSTINIL
     Dosage: 72 ?G, QID
     Dates: start: 2025
  9. TYLENOL [Concomitant]
     Active Substance: ACETAMINOPHEN
     Indication: Headache
  10. ASPIRIN AND CAFFEINE [Concomitant]
     Active Substance: ASPIRIN\CAFFEINE
     Indication: Migraine
  11. ASPIRIN AND CAFFEINE [Concomitant]
     Active Substance: ASPIRIN\CAFFEINE
     Indication: Headache
  12. FIORICET [Concomitant]
     Active Substance: ACETAMINOPHEN\BUTALBITAL\CAFFEINE
     Indication: Migraine
  13. FIORICET [Concomitant]
     Active Substance: ACETAMINOPHEN\BUTALBITAL\CAFFEINE
     Indication: Headache
  14. Gel one [Concomitant]
     Indication: Product used for unknown indication

REACTIONS (10)
  - Cough [Not Recovered/Not Resolved]
  - Headache [Not Recovered/Not Resolved]
  - Throat irritation [Not Recovered/Not Resolved]
  - Migraine [Not Recovered/Not Resolved]
  - Tremor [Unknown]
  - Fatigue [Unknown]
  - Dysphagia [Not Recovered/Not Resolved]
  - Nausea [Not Recovered/Not Resolved]
  - Incorrect dose administered [Recovered/Resolved]
  - Device power source issue [Unknown]

NARRATIVE: CASE EVENT DATE: 20250101
